FAERS Safety Report 18694949 (Version 4)
Quarter: 2021Q1

REPORT INFORMATION
  Report Type: Other
  Country: PT (occurrence: PT)
  Receive Date: 20210104
  Receipt Date: 20210325
  Transmission Date: 20210419
  Serious: Yes (Disabling, Other)
  Sender: FDA-Public Use
  Company Number: PT-ROCHE-2741281

PATIENT
  Sex: Male

DRUGS (9)
  1. LIVAZO [Concomitant]
     Active Substance: PITAVASTATIN CALCIUM
  2. MORPHINE [Concomitant]
     Active Substance: MORPHINE
     Dosage: 20 MG 2 DROPS IN SOS EVERY 6 HOURS
  3. PANTOPRAZOL [Concomitant]
     Active Substance: PANTOPRAZOLE SODIUM
     Dosage: 1 TABLET IN FASTING
  4. CODIPRONT (PORTUGAL) [Concomitant]
     Dosage: 30 MG 1 TABLET AT NIGHT
  5. ESBRIET [Suspect]
     Active Substance: PIRFENIDONE
     Indication: IDIOPATHIC PULMONARY FIBROSIS
     Dosage: 2 TABLETS 3 TIMES A DAY
     Route: 048
     Dates: start: 20191001
  6. EUTIROX [Concomitant]
     Active Substance: LEVOTHYROXINE SODIUM
     Dosage: 50 MG 1 TABLET FASTING
  7. FLIXOTIDE [Concomitant]
     Active Substance: FLUTICASONE PROPIONATE
     Dosage: IN THE MORNING AND BEFORE DINNER
  8. SPIOLTO RESPIMAT [Concomitant]
     Active Substance: OLODATEROL HYDROCHLORIDE\TIOTROPIUM BROMIDE MONOHYDRATE
     Dosage: SOLUTION FOR INHALATION) IN THE MORNING
  9. ESOMEPRAZOLE. [Concomitant]
     Active Substance: ESOMEPRAZOLE MAGNESIUM
     Dosage: 40MG 2 TABLETS A DAY

REACTIONS (8)
  - Fatigue [Recovered/Resolved]
  - Hypertension [Unknown]
  - Cough [Not Recovered/Not Resolved]
  - Abdominal pain upper [Recovered/Resolved]
  - Dyspnoea [Recovered/Resolved]
  - Tremor [Recovered/Resolved]
  - Cardiac disorder [Unknown]
  - Abdominal pain upper [Recovering/Resolving]

NARRATIVE: CASE EVENT DATE: 20210305
